FAERS Safety Report 8533268-0 (Version None)
Quarter: 2012Q3

REPORT INFORMATION
  Report Type: 
  Country: None (occurrence: None)
  Receive Date: 20120724
  Receipt Date: 20120713
  Transmission Date: 20120928
  Serious: Yes (Life-Threatening, Hospitalization, Other)
  Sender: FDA-Public Use
  Company Number: FR-ELI_LILLY_AND_COMPANY-FR201206001265

PATIENT
  Sex: Male

DRUGS (7)
  1. OLANZAPINE [Suspect]
     Indication: SCHIZOPHRENIA, PARANOID TYPE
     Dosage: 405 MG, 2/W
     Route: 030
     Dates: start: 20120511
  2. OLANZAPINE [Suspect]
     Dosage: 405 MG, UNK
     Route: 030
     Dates: start: 20120525
  3. NOCTAMIDE [Concomitant]
     Dosage: 1 MG, QD
     Dates: start: 20120424
  4. TRANXENE [Concomitant]
     Dosage: 10 MG, QD
     Dates: start: 20120521
  5. OLANZAPINE [Suspect]
     Dosage: 20 MG, QD
     Route: 048
  6. LESCOL [Concomitant]
     Dosage: 40 MG, UNK
     Dates: start: 20120425
  7. OLANZAPINE [Suspect]
     Dosage: 20 MG, QD
     Route: 048
     Dates: end: 20120511

REACTIONS (3)
  - OVERDOSE [None]
  - COMA [None]
  - SOMNOLENCE [None]
